FAERS Safety Report 6019185-9 (Version None)
Quarter: 2008Q4

REPORT INFORMATION
  Report Type: 
  Country: None (occurrence: None)
  Receive Date: 20081224
  Receipt Date: 20081212
  Transmission Date: 20090506
  Serious: Yes (Hospitalization)
  Sender: FDA-Public Use
  Company Number: FR-AVENTIS-200814382FR

PATIENT
  Age: 51 Year
  Sex: Male

DRUGS (10)
  1. TOPALGIC LP [Suspect]
     Route: 048
     Dates: start: 20081001, end: 20081020
  2. LASIX [Suspect]
     Route: 048
     Dates: end: 20081020
  3. COLCHICINE [Suspect]
     Route: 048
     Dates: start: 20081017, end: 20081017
  4. COLCHICINE [Suspect]
     Route: 048
     Dates: start: 20081018, end: 20081018
  5. COLCHICINE [Suspect]
     Route: 048
     Dates: start: 20081019, end: 20081019
  6. SKENAN [Concomitant]
     Route: 048
     Dates: start: 20081019, end: 20081025
  7. MORPHINE [Concomitant]
     Route: 048
     Dates: start: 20081019, end: 20081025
  8. ATACAND [Concomitant]
     Route: 048
     Dates: end: 20081021
  9. CARDENSIEL [Concomitant]
     Route: 048
     Dates: end: 20081025
  10. ALDACTONE [Concomitant]
     Route: 048
     Dates: end: 20081025

REACTIONS (1)
  - CYTOLYTIC HEPATITIS [None]
